FAERS Safety Report 16359259 (Version 1)
Quarter: 2019Q2

REPORT INFORMATION
  Report Type: Spontaneous
  Country: DE (occurrence: DE)
  Receive Date: 20190527
  Receipt Date: 20190527
  Transmission Date: 20190711
  Serious: Yes (Other)
  Sender: FDA-Public Use
  Company Number: DE-BRISTOL-MYERS SQUIBB COMPANY-BMS-2019-050034

PATIENT
  Age: 79 Year
  Sex: Male
  Weight: 73 kg

DRUGS (1)
  1. ELIQUIS [Suspect]
     Active Substance: APIXABAN
     Indication: CEREBROVASCULAR ACCIDENT PROPHYLAXIS
     Dosage: 5 MILLIGRAM, BID
     Route: 065
     Dates: start: 20141113

REACTIONS (6)
  - Pneumonia [Unknown]
  - Cerebrovascular accident [Unknown]
  - Productive cough [Unknown]
  - Fatigue [Unknown]
  - Somnolence [Unknown]
  - Weight decreased [Unknown]
